FAERS Safety Report 15307483 (Version 2)
Quarter: 2018Q3

REPORT INFORMATION
  Report Type: Report from Study
  Country: US (occurrence: US)
  Receive Date: 20180822
  Receipt Date: 20180904
  Transmission Date: 20181010
  Serious: Yes (Death, Hospitalization, Other)
  Sender: FDA-Public Use
  Company Number: US-JNJFOC-20180804342

PATIENT
  Sex: Male

DRUGS (1)
  1. IMBRUVICA [Suspect]
     Active Substance: IBRUTINIB
     Indication: B-CELL SMALL LYMPHOCYTIC LYMPHOMA
     Route: 048
     Dates: start: 20180727

REACTIONS (6)
  - Renal failure [Unknown]
  - Hospitalisation [Unknown]
  - Death [Fatal]
  - Cardiac failure [Unknown]
  - Therapeutic response unexpected [Unknown]
  - Fall [Unknown]
